FAERS Safety Report 10888177 (Version 3)
Quarter: 2015Q1

REPORT INFORMATION
  Report Type: Spontaneous
  Country: FR (occurrence: FR)
  Receive Date: 20150304
  Receipt Date: 20150319
  Transmission Date: 20150721
  Serious: Yes (Death, Life-Threatening)
  Sender: FDA-Public Use
  Company Number: FR-009507513-1503FRA000820

PATIENT
  Age: 60 Year
  Sex: Female

DRUGS (12)
  1. ONDANSETRON [Suspect]
     Active Substance: ONDANSETRON
     Dosage: UNK, TID
     Route: 042
     Dates: start: 20150203, end: 20150208
  2. GLUCIDION G [Suspect]
     Active Substance: DEXTROSE\POTASSIUM CHLORIDE\SODIUM CHLORIDE
     Dosage: UNK
     Route: 042
     Dates: start: 20150201, end: 20150212
  3. ZELITREX [Suspect]
     Active Substance: VALACYCLOVIR HYDROCHLORIDE
     Dosage: 500 MG, QD
     Route: 048
     Dates: start: 20150202, end: 20150215
  4. CALCIDOSE [Suspect]
     Active Substance: CALCIUM CARBONATE
     Dosage: 500 MG, QD
     Route: 048
     Dates: end: 20150214
  5. AERIUS [Suspect]
     Active Substance: DESLORATADINE
     Dosage: 5 MG, QD
     Route: 048
     Dates: end: 20150214
  6. EMEND [Suspect]
     Active Substance: APREPITANT
     Dosage: 1 DF, QD
     Route: 048
     Dates: start: 20150202, end: 20150211
  7. BUSILVEX [Suspect]
     Active Substance: BUSULFAN
     Indication: CHEMOTHERAPY
     Dosage: 6 MG, QD; ALSO REPORTED AS DAY- 6 TO DAY- 4: 0.8 MG/KG X 10 (1 DOSE EVERY 6 HOURS)
     Route: 042
     Dates: start: 20150205, end: 20150207
  8. RIVOTRIL [Suspect]
     Active Substance: CLONAZEPAM
     Dosage: 2 MG, QD
     Route: 048
     Dates: start: 20150205, end: 20150207
  9. ESOMEPRAZOLE [Suspect]
     Active Substance: ESOMEPRAZOLE
     Dosage: 40 MG, QD
     Route: 042
     Dates: end: 20150214
  10. TEPADINA [Suspect]
     Active Substance: THIOTEPA
     Indication: CHEMOTHERAPY
     Dosage: 450 MG, QD; ALSO REPORTED AS DAY - 9 TO DAY - 7: 250 MG/M^2/DAY
     Route: 042
     Dates: start: 20150202, end: 20150204
  11. UROMITEXAN [Suspect]
     Active Substance: MESNA
     Dosage: UNK; DAY -3 TO DAY 2: EQUIDOSE CYCLOPHOSPHAMIDE
     Route: 042
     Dates: start: 20150208, end: 20150209
  12. ENDOXAN [Suspect]
     Active Substance: CYCLOPHOSPHAMIDE
     Indication: CHEMOTHERAPY
     Dosage: DAY - 3 TO DAY - 2: 60 MG/KG/DAY
     Route: 042
     Dates: start: 20150208, end: 20150209

REACTIONS (5)
  - Mucosal inflammation [Fatal]
  - Septic shock [Fatal]
  - Multi-organ failure [Fatal]
  - Candida sepsis [Fatal]
  - Dermatitis bullous [Fatal]

NARRATIVE: CASE EVENT DATE: 2015
